FAERS Safety Report 23880076 (Version 1)
Quarter: 2024Q2

REPORT INFORMATION
  Report Type: Other
  Country: TW (occurrence: TW)
  Receive Date: 20240521
  Receipt Date: 20240521
  Transmission Date: 20240716
  Serious: Yes (Other)
  Sender: FDA-Public Use
  Company Number: TW-Merck Healthcare KGaA-2024024696

PATIENT
  Age: 39 Year
  Sex: Male

DRUGS (2)
  1. AVELUMAB [Suspect]
     Active Substance: AVELUMAB
     Indication: Clear cell renal cell carcinoma
  2. PEMBROLIZUMAB [Suspect]
     Active Substance: PEMBROLIZUMAB
     Indication: Clear cell renal cell carcinoma

REACTIONS (2)
  - Iridocyclitis [Recovering/Resolving]
  - Off label use [Unknown]
